FAERS Safety Report 25903270 (Version 1)
Quarter: 2025Q4

REPORT INFORMATION
  Report Type: Report from Study
  Country: US (occurrence: US)
  Receive Date: 20251009
  Receipt Date: 20251009
  Transmission Date: 20260118
  Serious: No
  Sender: JOHNSON AND JOHNSON
  Company Number: US-JNJFOC-20251000154

PATIENT
  Age: 36 Year
  Sex: Male

DRUGS (2)
  1. TREMFYA [Suspect]
     Active Substance: GUSELKUMAB
     Indication: Crohn^s disease
     Dosage: AT WEEK 0 (JUN-2025), WEEK 4 (JUL-2025)
     Route: 058
     Dates: start: 202508
  2. TREMFYA [Suspect]
     Active Substance: GUSELKUMAB
     Route: 058

REACTIONS (4)
  - Heart rate irregular [Unknown]
  - Heart rate increased [Unknown]
  - Latent tuberculosis [Unknown]
  - Hepatic enzyme increased [Unknown]
